FAERS Safety Report 12426889 (Version 2)
Quarter: 2016Q2

REPORT INFORMATION
  Report Type: Report from Study
  Country: US (occurrence: US)
  Receive Date: 20160601
  Receipt Date: 20160602
  Transmission Date: 20160815
  Serious: Yes (Hospitalization)
  Sender: FDA-Public Use
  Company Number: US-ABBVIE-16K-163-1566041-00

PATIENT
  Age: 19 Year
  Sex: Female
  Weight: 82.63 kg

DRUGS (4)
  1. HUMIRA [Suspect]
     Active Substance: ADALIMUMAB
     Indication: CROHN^S DISEASE
     Route: 058
     Dates: start: 2012
  2. HUMIRA [Suspect]
     Active Substance: ADALIMUMAB
     Dosage: LOADING DOSE
     Route: 058
     Dates: start: 20160208, end: 20160208
  3. HUMIRA [Suspect]
     Active Substance: ADALIMUMAB
     Route: 058
     Dates: start: 2016
  4. PENTASA [Suspect]
     Active Substance: MESALAMINE
     Indication: CROHN^S DISEASE
     Route: 065
     Dates: start: 201602, end: 201604

REACTIONS (8)
  - Crohn^s disease [Recovered/Resolved]
  - Headache [Unknown]
  - Stomatitis [Recovered/Resolved]
  - Intestinal ulcer [Unknown]
  - Ulcer [Recovered/Resolved]
  - Rash [Recovered/Resolved]
  - Drug dose omission [Unknown]
  - Injection site pain [Recovered/Resolved with Sequelae]

NARRATIVE: CASE EVENT DATE: 2012
